FAERS Safety Report 4491208-8 (Version None)
Quarter: 2004Q3

REPORT INFORMATION
  Report Type: 
  Country: None (occurrence: None)
  Receive Date: 20040927
  Receipt Date: 20040805
  Transmission Date: 20050211
  Serious: No
  Sender: FDA-Public Use
  Company Number: USA040874606

PATIENT
  Age: 30 Year
  Sex: Female
  Weight: 73 kg

DRUGS (2)
  1. STRATTERA [Suspect]
     Indication: ATTENTION DEFICIT/HYPERACTIVITY DISORDER
     Dosage: 100 MG/ 1DAY
     Dates: start: 20040201
  2. PHENTERMINE [Concomitant]

REACTIONS (5)
  - FATIGUE [None]
  - FUNGAL INFECTION [None]
  - HYPOAESTHESIA ORAL [None]
  - PERIPHERAL COLDNESS [None]
  - POOR PERIPHERAL CIRCULATION [None]
